FAERS Safety Report 10229784 (Version 2)
Quarter: 2014Q3

REPORT INFORMATION
  Report Type: Spontaneous
  Country: US (occurrence: US)
  Receive Date: 20140611
  Receipt Date: 20140711
  Transmission Date: 20150326
  Serious: Yes (Other)
  Sender: FDA-Public Use
  Company Number: US-LUNDBECK-DKLU1100756

PATIENT
  Age: 13 Year
  Sex: Male
  Weight: 60 kg

DRUGS (11)
  1. SABRIL [Suspect]
     Active Substance: VIGABATRIN
     Indication: EPILEPSY
  2. KLONOPIN [Concomitant]
     Active Substance: CLONAZEPAM
     Indication: CONVULSION
  3. BANZEL [Concomitant]
     Active Substance: RUFINAMIDE
     Indication: CONVULSION
  4. ALBUTEROL HFA [Concomitant]
     Active Substance: ALBUTEROL SULFATE
     Indication: WHEEZING
     Route: 050
  5. ALBUTEROL HFA [Concomitant]
     Active Substance: ALBUTEROL SULFATE
     Indication: DYSPNOEA
  6. BUDESONIDE. [Concomitant]
     Active Substance: BUDESONIDE
     Indication: PRODUCT USED FOR UNKNOWN INDICATION
     Route: 050
  7. SABRIL [Suspect]
     Active Substance: VIGABATRIN
     Indication: COMPLEX PARTIAL SEIZURES
     Route: 048
     Dates: start: 20140515, end: 20140610
  8. ALBUTEROL. [Concomitant]
     Active Substance: ALBUTEROL
     Indication: WHEEZING
     Route: 050
  9. KEPPRA [Concomitant]
     Active Substance: LEVETIRACETAM
     Indication: CONVULSION
  10. ALBUTEROL. [Concomitant]
     Active Substance: ALBUTEROL
     Indication: DYSPNOEA
  11. PANTOPRAZOLE [Concomitant]
     Active Substance: PANTOPRAZOLE SODIUM
     Indication: PRODUCT USED FOR UNKNOWN INDICATION
     Route: 048

REACTIONS (10)
  - Abdominal pain upper [Unknown]
  - Urticaria [Unknown]
  - Dysuria [Unknown]
  - Aggression [Unknown]
  - Generalised tonic-clonic seizure [Unknown]
  - Visual impairment [Unknown]
  - Convulsion [Unknown]
  - Back pain [Unknown]
  - Amnesia [Unknown]
  - Mood altered [Unknown]

NARRATIVE: CASE EVENT DATE: 20140518
